FAERS Safety Report 9582044 (Version 1)
Quarter: 2013Q4

REPORT INFORMATION
  Report Type: Report from Study
  Country: JP (occurrence: JP)
  Receive Date: 20131002
  Receipt Date: 20131002
  Transmission Date: 20140711
  Serious: Yes (Death, Life-Threatening, Hospitalization, Other)
  Sender: FDA-Public Use
  Company Number: JP-BAXTER-2013BAX038564

PATIENT
  Age: 39 Year
  Sex: Male

DRUGS (23)
  1. ENDOXAN 1G [Suspect]
     Indication: PRODUCT USED FOR UNKNOWN INDICATION
     Route: 065
  2. CELLTOP [Suspect]
     Indication: PRODUCT USED FOR UNKNOWN INDICATION
     Route: 065
  3. VANCOMYCIN HYDROCHLORIDE [Suspect]
     Indication: PRODUCT USED FOR UNKNOWN INDICATION
     Route: 042
     Dates: start: 20091108, end: 20091118
  4. SPRYCEL [Suspect]
     Indication: CHRONIC MYELOID LEUKAEMIA
     Route: 048
     Dates: start: 20091007, end: 20091019
  5. SPRYCEL [Suspect]
     Route: 048
     Dates: start: 20091020, end: 20091123
  6. SPRYCEL [Suspect]
     Route: 048
     Dates: start: 20100826, end: 20101201
  7. SPRYCEL [Suspect]
     Route: 048
     Dates: start: 20110112, end: 20110118
  8. SPRYCEL [Suspect]
     Route: 048
     Dates: start: 20110209, end: 20110210
  9. SPRYCEL [Suspect]
     Route: 048
     Dates: start: 20110211, end: 20110224
  10. SPRYCEL [Suspect]
     Route: 048
     Dates: start: 20110302, end: 20110315
  11. SPRYCEL [Suspect]
     Route: 048
     Dates: start: 20110601, end: 20110701
  12. SPRYCEL [Suspect]
     Route: 048
     Dates: start: 20110716, end: 20110718
  13. SPRYCEL [Suspect]
     Route: 048
     Dates: start: 20110719, end: 20110719
  14. SPRYCEL [Suspect]
     Route: 048
     Dates: start: 20110720, end: 20110722
  15. SPRYCEL [Suspect]
     Route: 048
     Dates: start: 20110723, end: 20110805
  16. ZYVOX [Suspect]
     Indication: PRODUCT USED FOR UNKNOWN INDICATION
     Route: 042
     Dates: start: 20091119, end: 20091122
  17. IDAMYCIN [Suspect]
     Indication: PRODUCT USED FOR UNKNOWN INDICATION
     Route: 065
     Dates: start: 20101204
  18. IDAMYCIN [Suspect]
     Route: 065
     Dates: start: 20110117
  19. CYLOCIDE [Suspect]
     Indication: PRODUCT USED FOR UNKNOWN INDICATION
     Route: 065
     Dates: start: 20101204
  20. CYLOCIDE [Suspect]
     Route: 065
     Dates: start: 20110117
  21. DAUNORUBICIN HCL [Suspect]
     Indication: PRODUCT USED FOR UNKNOWN INDICATION
     Route: 065
  22. NOVANTRON [Suspect]
     Indication: PRODUCT USED FOR UNKNOWN INDICATION
     Route: 065
  23. MAGMITT [Concomitant]
     Indication: PRODUCT USED FOR UNKNOWN INDICATION
     Route: 065
     Dates: start: 20100616

REACTIONS (8)
  - Malignant neoplasm progression [Fatal]
  - Renal failure acute [Recovered/Resolved]
  - Platelet count decreased [Recovered/Resolved]
  - Febrile neutropenia [Recovered/Resolved]
  - Pleural effusion [Unknown]
  - Generalised oedema [Recovered/Resolved]
  - White blood cell count decreased [Recovered/Resolved]
  - Anaemia [Recovering/Resolving]
